FAERS Safety Report 19727345 (Version 3)
Quarter: 2021Q3

REPORT INFORMATION
  Report Type: Report from Study
  Country: US (occurrence: US)
  Receive Date: 20210819
  Receipt Date: 20210921
  Transmission Date: 20211014
  Serious: No
  Sender: FDA-Public Use
  Company Number: NVSC2021US183887

PATIENT
  Sex: Female
  Weight: 55.33 kg

DRUGS (2)
  1. TREPROSTINIL. [Suspect]
     Active Substance: TREPROSTINIL
     Indication: HYPERTENSION
     Dosage: 50 NG/KG/MIN, CONTINOUS
     Route: 058
     Dates: start: 20210308
  2. AMBRISENTAN [Concomitant]
     Active Substance: AMBRISENTAN
     Indication: PRODUCT USED FOR UNKNOWN INDICATION
     Route: 065

REACTIONS (4)
  - Injection site pain [Unknown]
  - Injection site irritation [Unknown]
  - Pain in extremity [Unknown]
  - Product use issue [Unknown]
